FAERS Safety Report 7646541-5 (Version None)
Quarter: 2011Q3

REPORT INFORMATION
  Report Type: 
  Country: None (occurrence: None)
  Receive Date: 20110725
  Receipt Date: 20110707
  Transmission Date: 20111222
  Serious: Yes (Other)
  Sender: FDA-Public Use
  Company Number: JHP201100351

PATIENT
  Sex: Male

DRUGS (13)
  1. INSULIN [Concomitant]
  2. ATRACURIUM (ATRACURIUM BESILATE) [Concomitant]
  3. VECURONIUM BROMIDE [Concomitant]
  4. NTIROUS OXIDE (NITROUS OXIDE) [Concomitant]
  5. BICARBONATE (SODIUM BICARBONATE) [Concomitant]
  6. PROCAINAMIDE [Concomitant]
  7. ISOFLURANE [Concomitant]
  8. BRETYLIUM (BRETYLIUM) [Concomitant]
  9. DANTROLENE SODIUM [Suspect]
     Indication: HYPERTHERMIA MALIGNANT
     Dosage: 645 MG, TOTAL, INTRAVENOUS
     Route: 042
  10. DEXTROSE 5% [Concomitant]
  11. FENTANYL [Concomitant]
  12. THIOPENTAL (THIOPENTAL SODIUM) [Concomitant]
  13. MANNITOL [Concomitant]

REACTIONS (3)
  - HYPERKALAEMIA [None]
  - MUSCULAR WEAKNESS [None]
  - CEREBROVASCULAR ACCIDENT [None]
